FAERS Safety Report 14961694 (Version 1)
Quarter: 2018Q2

REPORT INFORMATION
  Report Type: Spontaneous
  Country: US (occurrence: US)
  Receive Date: 20180601
  Receipt Date: 20180601
  Transmission Date: 20180711
  Serious: Yes (Life-Threatening, Hospitalization, Other)
  Sender: FDA-Public Use
  Company Number: US-ACCORD-067523

PATIENT
  Age: 41 Year
  Sex: Female

DRUGS (8)
  1. ACETYLSALICYLIC ACID [Suspect]
     Active Substance: ASPIRIN
     Indication: CHEST PAIN
  2. HEPARIN [Suspect]
     Active Substance: HEPARIN SODIUM
     Indication: THROMBECTOMY
     Dosage: BOLUS OF 70 U/KG
     Route: 040
  3. PHENYLEPHRINE [Concomitant]
     Active Substance: PHENYLEPHRINE\PHENYLEPHRINE HYDROCHLORIDE
     Indication: HYPOTENSION
     Dosage: MULTIPLE BOLUSES
     Route: 040
  4. NOREPINEPHRINE. [Concomitant]
     Active Substance: NOREPINEPHRINE
     Indication: CARDIAC ARREST
     Route: 041
  5. EPTIFIBATIDE. [Suspect]
     Active Substance: EPTIFIBATIDE
     Indication: THROMBECTOMY
     Dosage: BOLUS OF 180 MG/KG FOLLOWED BY A 1 MCG/KG/MIN DRIP
     Route: 040
  6. MORPHINE [Concomitant]
     Active Substance: MORPHINE
     Indication: CHEST PAIN
  7. CLOPIDOGREL [Suspect]
     Active Substance: CLOPIDOGREL BISULFATE
     Indication: CHEST PAIN
  8. GLYCERYL TRINITRATE [Concomitant]
     Active Substance: NITROGLYCERIN
     Indication: CHEST PAIN
     Dosage: TWO DOSES OF 0.4 MG
     Route: 060

REACTIONS (2)
  - Haematoma [Unknown]
  - Thrombocytopenia [Recovered/Resolved]
